FAERS Safety Report 7432250-4 (Version None)
Quarter: 2011Q2

REPORT INFORMATION
  Report Type: 
  Country: None (occurrence: None)
  Receive Date: 20110422
  Receipt Date: 20110418
  Transmission Date: 20111010
  Serious: Yes (Other)
  Sender: FDA-Public Use
  Company Number: US-ASTRAZENECA-2007UW05117

PATIENT
  Sex: Female
  Weight: 125.6 kg

DRUGS (9)
  1. PAXIL [Concomitant]
  2. CLONAZEPAM [Concomitant]
  3. ZYPREXA [Concomitant]
     Dates: start: 20030101, end: 20030301
  4. SEROQUEL [Suspect]
     Route: 048
     Dates: start: 20030123, end: 20060401
  5. SEROQUEL [Suspect]
     Indication: SLEEP DISORDER
     Route: 048
     Dates: start: 20030123
  6. CLONAZEPAM [Concomitant]
     Dates: start: 20030111
  7. GEODON [Concomitant]
  8. ZYPREXA [Concomitant]
     Dates: start: 20030112
  9. HYDROXYZINE [Concomitant]

REACTIONS (5)
  - MYOCARDIAL INFARCTION [None]
  - HYPERGLYCAEMIA [None]
  - PANCREATITIS [None]
  - TYPE 2 DIABETES MELLITUS [None]
  - KETOACIDOSIS [None]
